FAERS Safety Report 8759245 (Version 2)
Quarter: 2012Q4

REPORT INFORMATION
  Report Type: 
  Country: DE (occurrence: DE)
  Receive Date: 20120829
  Receipt Date: 20121120
  Transmission Date: 20130627
  Serious: Yes (Other)
  Sender: FDA-Public Use
  Company Number: DE-UCBSA-064452

PATIENT
  Age: 19 None
  Sex: Female
  Weight: 49 kg

DRUGS (2)
  1. KEPPRA [Suspect]
     Dosage: UNKNOWN DOSE
  2. KEPPRA [Suspect]
     Dates: start: 2011

REACTIONS (3)
  - Weight decreased [Unknown]
  - Convulsion [Recovered/Resolved]
  - Overdose [Unknown]
